FAERS Safety Report 4602630-0 (Version None)
Quarter: 2005Q1

REPORT INFORMATION
  Report Type: 
  Country: None (occurrence: None)
  Receive Date: 20050308
  Receipt Date: 20050303
  Transmission Date: 20050727
  Serious: Yes (Death)
  Sender: FDA-Public Use
  Company Number: 05-02-0190

PATIENT
  Age: 33 Year
  Sex: Male
  Weight: 65.318 kg

DRUGS (6)
  1. CLOZAPINE [Suspect]
     Indication: SCHIZOPHRENIA, PARANOID TYPE
     Dosage: 600MG QD ORAL
     Route: 048
     Dates: start: 19990601, end: 20050101
  2. SEROQUEL [Concomitant]
  3. LUVOX [Concomitant]
  4. ATIVAN [Concomitant]
  5. SURPAK [Concomitant]
  6. PROTONIX [Concomitant]

REACTIONS (1)
  - CARDIO-RESPIRATORY ARREST [None]
